FAERS Safety Report 19077646 (Version 1)
Quarter: 2021Q1

REPORT INFORMATION
  Report Type: Spontaneous
  Country: US (occurrence: US)
  Receive Date: 20210331
  Receipt Date: 20210331
  Transmission Date: 20210420
  Serious: Yes (Disabling, Other)
  Sender: FDA-Public Use
  Company Number: US-CIPLA LTD.-2021US02183

PATIENT

DRUGS (7)
  1. DOXYCYCLINE MONOHYDRATE [Concomitant]
     Active Substance: DOXYCYCLINE
     Indication: LYME DISEASE
     Dosage: 100 MILLIGRAM, BID (ONE CAPSULE TWICE A DAY)
     Route: 065
  2. ARIMIDEX [Concomitant]
     Active Substance: ANASTROZOLE
     Indication: NEOPLASM MALIGNANT
     Dosage: 1 MILLIGRAM, QD
     Route: 065
  3. ARMOUR THYROID [Concomitant]
     Active Substance: THYROID, PORCINE
     Indication: THYROID DISORDER
     Dosage: 60 MILLIGRAM, QD, ONE BEFORE BREAKFAST
     Route: 065
  4. CELECOXIB. [Suspect]
     Active Substance: CELECOXIB
     Indication: ARTHRITIS
     Dosage: 200 MILLIGRAM, QD
     Route: 065
     Dates: start: 2021, end: 2021
  5. CELECOXIB. [Suspect]
     Active Substance: CELECOXIB
     Dosage: 200 MILLIGRAM, QOD (ONE CAPSULE EVERY OTHER DAY)
     Route: 065
     Dates: start: 2021, end: 2021
  6. PROLIA [Concomitant]
     Active Substance: DENOSUMAB
     Indication: OSTEOPENIA
     Dosage: UNK, ONE INJECTION ONCE IN EVERY SIX MONTHS
     Route: 065
  7. CELECOXIB. [Suspect]
     Active Substance: CELECOXIB
     Dosage: 200 MILLIGRAM, (ONE CAPSULE IN EVERY THREE DAYS )
     Route: 065
     Dates: start: 2021, end: 20210315

REACTIONS (5)
  - Loss of control of legs [Not Recovered/Not Resolved]
  - Gait inability [Not Recovered/Not Resolved]
  - Disability [Not Recovered/Not Resolved]
  - Muscle spasms [Not Recovered/Not Resolved]
  - Pain [Not Recovered/Not Resolved]

NARRATIVE: CASE EVENT DATE: 202103
